FAERS Safety Report 25530683 (Version 1)
Quarter: 2025Q3

REPORT INFORMATION
  Report Type: Spontaneous
  Country: US (occurrence: US)
  Receive Date: 20250708
  Receipt Date: 20250708
  Transmission Date: 20251020
  Serious: Yes (Other)
  Sender: UCB
  Company Number: US-UCBSA-2025041287

PATIENT
  Age: 39 Year
  Sex: Female

DRUGS (4)
  1. LEVETIRACETAM [Suspect]
     Active Substance: LEVETIRACETAM
     Indication: Simple partial seizures
     Dosage: 1500 MILLIGRAM, 2X/DAY (BID)
  2. CENOBAMATE [Suspect]
     Active Substance: CENOBAMATE
     Indication: Simple partial seizures
  3. CENOBAMATE [Suspect]
     Active Substance: CENOBAMATE
  4. FOLATE SODIUM [Concomitant]
     Active Substance: FOLATE SODIUM
     Indication: Product used for unknown indication

REACTIONS (4)
  - Seizure [Recovering/Resolving]
  - Hyperemesis gravidarum [Recovering/Resolving]
  - Maternal exposure before pregnancy [Unknown]
  - Maternal exposure during pregnancy [Unknown]
